FAERS Safety Report 22321454 (Version 1)
Quarter: 2023Q2

REPORT INFORMATION
  Report Type: Spontaneous
  Country: SE (occurrence: SE)
  Receive Date: 20230515
  Receipt Date: 20230515
  Transmission Date: 20230722
  Serious: Yes (Death)
  Sender: FDA-Public Use
  Company Number: None

PATIENT
  Age: 33 Year
  Sex: Male

DRUGS (7)
  1. MIRTAZAPINE [Interacting]
     Active Substance: MIRTAZAPINE
     Dosage: UNK
     Route: 048
  2. OXYBATE [Interacting]
     Active Substance: OXYBATE
     Dosage: UNK
  3. DIAZEPAM [Interacting]
     Active Substance: DIAZEPAM
     Dosage: UNK
  4. FLUNITRAZEPAM [Interacting]
     Active Substance: FLUNITRAZEPAM
     Dosage: UNK
  5. PROPIOMAZINE [Interacting]
     Active Substance: PROPIOMAZINE
     Dosage: UNK
  6. MORPHINE [Interacting]
     Active Substance: MORPHINE
     Dosage: UNK
  7. ALCOHOL [Interacting]
     Active Substance: ALCOHOL
     Indication: Alcohol use
     Dosage: UNK

REACTIONS (2)
  - Toxicity to various agents [Fatal]
  - Drug interaction [Fatal]
